FAERS Safety Report 5250145-1 (Version None)
Quarter: 2007Q1

REPORT INFORMATION
  Report Type: 
  Country: None (occurrence: None)
  Receive Date: 20070228
  Receipt Date: 20070110
  Transmission Date: 20070707
  Serious: No
  Sender: FDA-Public Use
  Company Number: US-GLAXOSMITHKLINE-A0593487A

PATIENT
  Age: 19 Year
  Sex: Female

DRUGS (3)
  1. LAMICTAL [Suspect]
     Indication: PARTIAL SEIZURES
     Dosage: 150MG PER DAY
     Route: 048
     Dates: start: 20051201
  2. ZARONTIN [Concomitant]
  3. NO CONCURRENT MEDICATION [Concomitant]

REACTIONS (5)
  - ACNE [None]
  - DYSPHEMIA [None]
  - FEELING ABNORMAL [None]
  - THERAPEUTIC RESPONSE UNEXPECTED [None]
  - TOOTH DISORDER [None]
